FAERS Safety Report 9006661 (Version 1)
Quarter: 2013Q1

REPORT INFORMATION
  Report Type: Spontaneous
  Country: US (occurrence: US)
  Receive Date: 20130110
  Receipt Date: 20130110
  Transmission Date: 20140127
  Serious: Yes (Other)
  Sender: FDA-Public Use
  Company Number: US-009507513-1301USA003318

PATIENT
  Sex: Male

DRUGS (12)
  1. SIMVASTATIN TABLETS, USP [Suspect]
  2. SINGULAIR [Suspect]
     Dosage: UNKNOWN
  3. AMLODIPINE BESYLATE [Suspect]
  4. TERAZOSIN HYDROCHLORIDE [Suspect]
  5. SALSALATE [Suspect]
  6. FINASTERIDE [Suspect]
  7. LISINOPRIL [Suspect]
  8. OMEPRAZOLE [Suspect]
  9. FLAXSEED [Suspect]
  10. OMEGA-3 MARINE TRIGLYCERIDES [Suspect]
  11. VITAMIN E [Suspect]
  12. VITAMIN D (UNSPECIFIED) [Suspect]

REACTIONS (2)
  - Dysuria [Unknown]
  - Cataract [Unknown]
